FAERS Safety Report 5877439-0 (Version None)
Quarter: 2008Q3

REPORT INFORMATION
  Report Type: 
  Country: None (occurrence: None)
  Receive Date: 20080911
  Receipt Date: 20080901
  Transmission Date: 20090109
  Serious: Yes (Hospitalization)
  Sender: FDA-Public Use
  Company Number: JP-RANBAXY-2008RR-17726

PATIENT

DRUGS (7)
  1. AMLODIPINE [Suspect]
     Indication: HYPERTENSION
     Dosage: 10 MG, UNK
  2. AMLODIPINE [Suspect]
     Dosage: 5 MG, UNK
  3. LOSARTAN RANBAXY 100MG COMPRIMIDOS EFG [Suspect]
     Indication: HYPERTENSION
     Dosage: 25 MG, UNK
  4. METHYLDOPA [Suspect]
     Indication: HYPERTENSION
     Dosage: 1000 MG, UNK
  5. DOXAZOSIN 2MG TABLETS [Suspect]
     Indication: HYPERTENSION
     Dosage: 8 MG, UNK
  6. DOXAZOSIN 2MG TABLETS [Suspect]
     Dosage: 2 MG, UNK
  7. BISOPROLOL FUMARATE [Suspect]
     Indication: HYPERTENSION
     Dosage: 2.5 MG, UNK

REACTIONS (1)
  - HYPOPERFUSION [None]
